FAERS Safety Report 8998744 (Version 1)
Quarter: 2013Q1

REPORT INFORMATION
  Report Type: Spontaneous
  Country: US (occurrence: US)
  Receive Date: 20130103
  Receipt Date: 20130103
  Transmission Date: 20140127
  Serious: No
  Sender: FDA-Public Use
  Company Number: US-PFIZER INC-2012333261

PATIENT
  Age: 71 Year
  Sex: Female
  Weight: 43.1 kg

DRUGS (2)
  1. PREMARIN VAGINAL CREAM [Suspect]
     Indication: ATROPHIC VULVOVAGINITIS
     Dosage: 0.625 MG, UNK
     Route: 067
     Dates: start: 20121226, end: 20121226
  2. ZANTAC [Concomitant]
     Indication: ABDOMINAL DISCOMFORT
     Dosage: UNK

REACTIONS (1)
  - Application site inflammation [Not Recovered/Not Resolved]
